FAERS Safety Report 4648318-1 (Version None)
Quarter: 2005Q2

REPORT INFORMATION
  Report Type: 
  Country: None (occurrence: None)
  Receive Date: 20050427
  Receipt Date: 20050413
  Transmission Date: 20051028
  Serious: Yes (Death, Other)
  Sender: FDA-Public Use
  Company Number: GBS050417153

PATIENT
  Age: 54 Year
  Sex: Male

DRUGS (2)
  1. ZYPREXA [Suspect]
     Dosage: 7.5 MG DAY
     Dates: start: 20040420
  2. VENLAFAXINE HCL [Concomitant]

REACTIONS (3)
  - COMPLETED SUICIDE [None]
  - DRUG LEVEL INCREASED [None]
  - INJURY ASPHYXIATION [None]
